FAERS Safety Report 4323618-3 (Version None)
Quarter: 2004Q1

REPORT INFORMATION
  Report Type: 
  Country: None (occurrence: None)
  Receive Date: 20040326
  Receipt Date: 20040122
  Transmission Date: 20041129
  Serious: Yes (Hospitalization)
  Sender: FDA-Public Use
  Company Number: 200410210EU

PATIENT
  Age: 63 Year
  Sex: Male

DRUGS (10)
  1. TAXOTERE [Suspect]
     Indication: NASAL SINUS CANCER
     Route: 042
     Dates: start: 20031229, end: 20031229
  2. CISPLATIN [Suspect]
     Indication: NASAL SINUS CANCER
     Route: 042
     Dates: start: 20031229, end: 20031229
  3. LIPANTHYL ^THISSEN^ [Suspect]
     Indication: HYPERCHOLESTEROLAEMIA
     Route: 048
     Dates: end: 20040108
  4. ENALAPRIL MALEATE [Concomitant]
     Indication: CARDIAC DISORDER
     Route: 048
     Dates: end: 20040108
  5. ELTROXIN ^GLAXO^ [Concomitant]
     Indication: HYPOTHYROIDISM
     Route: 048
     Dates: end: 20040108
  6. SINTRON [Concomitant]
     Indication: ATRIAL FIBRILLATION
     Route: 048
     Dates: end: 20040108
  7. LORAZEPAM [Concomitant]
     Route: 048
     Dates: end: 20040108
  8. STILNOX [Concomitant]
     Route: 048
     Dates: end: 20040108
  9. TOLVON [Concomitant]
     Route: 048
     Dates: end: 20040108
  10. ZYBAN [Concomitant]
     Route: 048
     Dates: start: 20031101, end: 20040108

REACTIONS (5)
  - DRUG INTERACTION [None]
  - HEPATIC TRAUMA [None]
  - HEPATOTOXICITY [None]
  - NASAL SINUS CANCER [None]
  - RENAL FAILURE [None]
